FAERS Safety Report 4668332-X (Version None)
Quarter: 2005Q2

REPORT INFORMATION
  Report Type: 
  Country: None (occurrence: None)
  Receive Date: 20050523
  Receipt Date: 20050401
  Transmission Date: 20051028
  Serious: Yes (Other)
  Sender: FDA-Public Use
  Company Number: PHEH2005US03984

PATIENT
  Age: 74 Year
  Sex: Male

DRUGS (4)
  1. ZOMETA [Suspect]
     Indication: PROSTATE CANCER
     Dosage: 4 MG Q21DAYS
     Route: 042
     Dates: start: 20031007, end: 20041110
  2. HYDROCORTISONE ACETATE [Concomitant]
     Dosage: 10 MG, BID
     Route: 048
     Dates: start: 20040107
  3. LEUPROLIDE ACETATE [Concomitant]
     Indication: PROSTATE CANCER
     Dosage: 22.5 Q3MOS
     Dates: start: 20031230
  4. TAXOTERE [Concomitant]
     Dosage: 30MG/M2/DAY 1,18,15 Q28
     Dates: start: 20030813, end: 20031118

REACTIONS (4)
  - ASEPTIC NECROSIS BONE [None]
  - BONE DISORDER [None]
  - TOOTH EXTRACTION [None]
  - WOUND DEHISCENCE [None]
